FAERS Safety Report 14160252 (Version 6)
Quarter: 2018Q4

REPORT INFORMATION
  Report Type: Report from Study
  Country: None (occurrence: US)
  Receive Date: 20171104
  Receipt Date: 20181221
  Transmission Date: 20190204
  Serious: Yes (Hospitalization, Other)
  Sender: FDA-Public Use
  Company Number: US-ABBVIE-17K-163-1902050-00

PATIENT
  Sex: Male
  Weight: 63.11 kg

DRUGS (4)
  1. PREDNISONE. [Concomitant]
     Active Substance: PREDNISONE
     Indication: PRODUCT USED FOR UNKNOWN INDICATION
  2. HUMIRA [Suspect]
     Active Substance: ADALIMUMAB
     Indication: COLITIS ULCERATIVE
     Route: 058
     Dates: start: 20161110
  3. XARELTO [Concomitant]
     Active Substance: RIVAROXABAN
     Indication: PRODUCT USED FOR UNKNOWN INDICATION
  4. HUMIRA [Suspect]
     Active Substance: ADALIMUMAB
     Route: 058

REACTIONS (31)
  - Malnutrition [Recovered/Resolved]
  - Lacrimation increased [Not Recovered/Not Resolved]
  - Lung hyperinflation [Unknown]
  - Fall [Recovered/Resolved]
  - Visual field defect [Unknown]
  - Asthenia [Recovering/Resolving]
  - Hypotonia [Recovering/Resolving]
  - Dizziness [Recovered/Resolved]
  - Head injury [Recovered/Resolved]
  - Cerebrovascular accident [Recovering/Resolving]
  - Sepsis [Recovered/Resolved]
  - Weight decreased [Recovering/Resolving]
  - Pre-existing condition improved [Unknown]
  - Drug effect delayed [Unknown]
  - Drug ineffective [Unknown]
  - Myocardial infarction [Recovered/Resolved]
  - Listeria sepsis [Recovered/Resolved]
  - Therapeutic response unexpected [Unknown]
  - Cataract [Recovered/Resolved]
  - Amnesia [Unknown]
  - Arthritis [Unknown]
  - Diarrhoea [Recovering/Resolving]
  - Weight decreased [Recovered/Resolved]
  - Visual impairment [Not Recovered/Not Resolved]
  - Eye pruritus [Not Recovered/Not Resolved]
  - Visual field defect [Not Recovered/Not Resolved]
  - Cataract [Recovered/Resolved]
  - Ocular procedural complication [Not Recovered/Not Resolved]
  - Vision blurred [Not Recovered/Not Resolved]
  - Cerebrovascular accident [Recovered/Resolved]
  - Fungal skin infection [Recovered/Resolved]

NARRATIVE: CASE EVENT DATE: 2016
